FAERS Safety Report 9101929 (Version 1)
Quarter: 2013Q1

REPORT INFORMATION
  Report Type: Spontaneous
  Country: JP (occurrence: JP)
  Receive Date: 20130218
  Receipt Date: 20130218
  Transmission Date: 20140127
  Serious: Yes (Hospitalization)
  Sender: FDA-Public Use
  Company Number: PHHY2012JP118302

PATIENT
  Sex: 0

DRUGS (1)
  1. TEGRETOL [Suspect]
     Indication: EPILEPSY
     Dosage: 500 MG (200MG IN THE MORNING, 100MG IN THE DAYTIME AND 200MG IN THE EVENING), DAILY
     Route: 048

REACTIONS (1)
  - Pneumonia [Unknown]
